FAERS Safety Report 5398106-6 (Version None)
Quarter: 2007Q3

REPORT INFORMATION
  Report Type: 
  Country: None (occurrence: None)
  Receive Date: 20070726
  Receipt Date: 20070718
  Transmission Date: 20080115
  Serious: Yes (Death, Hospitalization)
  Sender: FDA-Public Use
  Company Number: HQWYE128419JUL07

PATIENT
  Age: 39 Year
  Sex: Female
  Weight: 57.6 kg

DRUGS (3)
  1. MYLOTARG [Suspect]
     Indication: ACUTE MYELOID LEUKAEMIA
     Dosage: 9.7 MG TOTAL DOSE ADMINISTERED
     Route: 042
     Dates: start: 20070707, end: 20070707
  2. DAUNORUBICIN HCL [Suspect]
     Indication: ACUTE MYELOID LEUKAEMIA
     Dosage: 216 MG TOTAL DOSE ADMINISTERED
     Route: 042
     Dates: start: 20070704, end: 20070706
  3. CYTARABINE [Suspect]
     Indication: ACUTE MYELOID LEUKAEMIA
     Dosage: 1127 MG TOTAL DOSE ADMINISTERED
     Route: 042
     Dates: start: 20070704, end: 20070711

REACTIONS (21)
  - ACUTE RESPIRATORY DISTRESS SYNDROME [None]
  - ALANINE AMINOTRANSFERASE INCREASED [None]
  - ALPHA HAEMOLYTIC STREPTOCOCCAL INFECTION [None]
  - ASPARTATE AMINOTRANSFERASE INCREASED [None]
  - BLOOD CREATININE INCREASED [None]
  - BLOOD CULTURE POSITIVE [None]
  - BRADYCARDIA [None]
  - CARDIO-RESPIRATORY ARREST [None]
  - CEREBRAL HAEMORRHAGE [None]
  - DIALYSIS [None]
  - DYSPNOEA [None]
  - FLUID OVERLOAD [None]
  - HEART RATE INCREASED [None]
  - HYPOCALCAEMIA [None]
  - HYPOTENSION [None]
  - HYPOXIA [None]
  - LUNG INFILTRATION [None]
  - PLATELET DISORDER [None]
  - PNEUMONITIS [None]
  - PUPILS UNEQUAL [None]
  - WHITE BLOOD CELL DISORDER [None]
